FAERS Safety Report 7610920-2 (Version None)
Quarter: 2011Q3

REPORT INFORMATION
  Report Type: 
  Country: None (occurrence: None)
  Receive Date: 20110715
  Receipt Date: 20110711
  Transmission Date: 20111222
  Serious: Yes (Hospitalization)
  Sender: FDA-Public Use
  Company Number: US-B.I. PHARMACEUTICALS,INC./RIDGEFIELD-2011-BP-17349BP

PATIENT
  Age: 75 Year
  Sex: Female
  Weight: 57.1 kg

DRUGS (7)
  1. WARFARIN SODIUM [Suspect]
     Route: 048
  2. PRADAXA [Suspect]
     Indication: ATRIAL FIBRILLATION
     Route: 048
     Dates: start: 20101201, end: 20110501
  3. SOTALOL HCL [Suspect]
     Route: 048
  4. DRONEDARONE HCL [Suspect]
  5. AMIODARONE HCL [Suspect]
     Indication: ATRIAL FIBRILLATION
     Dosage: 400 MG
     Route: 048
     Dates: start: 20091201
  6. AMIODARONE HCL [Suspect]
     Dosage: 200 MG
     Route: 048
     Dates: end: 20110501
  7. WARFARIN SODIUM [Suspect]
     Route: 048
     Dates: start: 20110601

REACTIONS (1)
  - BLADDER DISORDER [None]
